FAERS Safety Report 5801085-8 (Version None)
Quarter: 2008Q3

REPORT INFORMATION
  Report Type: 
  Country: None (occurrence: None)
  Receive Date: 20080707
  Receipt Date: 20080702
  Transmission Date: 20090109
  Serious: Yes (Disabling)
  Sender: FDA-Public Use
  Company Number: GB-RANBAXY-2008RR-16168

PATIENT

DRUGS (2)
  1. SIMVASTATIN 10MG TABLETS [Suspect]
     Dosage: 40 MG, UNK
     Route: 048
     Dates: start: 20070319, end: 20080421
  2. ALFUZOSIN HCL [Concomitant]
     Indication: BLADDER OBSTRUCTION
     Dosage: 10 MG, UNK
     Route: 048

REACTIONS (2)
  - PERINEAL PAIN [None]
  - PROSTATISM [None]
